FAERS Safety Report 12997457 (Version 2)
Quarter: 2016Q4

REPORT INFORMATION
  Report Type: Spontaneous
  Country: IT (occurrence: IT)
  Receive Date: 20161205
  Receipt Date: 20161226
  Transmission Date: 20170207
  Serious: Yes (Hospitalization)
  Sender: FDA-Public Use
  Company Number: IT-JNJFOC-20161129392

PATIENT
  Age: 65 Year
  Sex: Male

DRUGS (6)
  1. COMPETACT [Suspect]
     Active Substance: METFORMIN HYDROCHLORIDE\PIOGLITAZONE HYDROCHLORIDE
     Indication: DRUG ABUSE
     Route: 048
     Dates: start: 20140310, end: 20140310
  2. IBUPROFEN. [Suspect]
     Active Substance: IBUPROFEN
     Route: 048
  3. IBUPROFEN. [Suspect]
     Active Substance: IBUPROFEN
     Indication: DRUG ABUSE
     Route: 048
     Dates: start: 20140310, end: 20140310
  4. AMOXICILLINA [Suspect]
     Active Substance: AMOXICILLIN
     Indication: DRUG ABUSE
     Route: 048
     Dates: start: 20140310, end: 20140310
  5. ALCOHOL. [Suspect]
     Active Substance: ALCOHOL
     Indication: ALCOHOL ABUSE
     Route: 065
     Dates: start: 20140310
  6. RAMIPRIL. [Suspect]
     Active Substance: RAMIPRIL
     Indication: DRUG ABUSE
     Route: 048
     Dates: start: 20140310, end: 20140310

REACTIONS (3)
  - Drug abuse [Recovering/Resolving]
  - Crying [Recovering/Resolving]
  - Sopor [Recovering/Resolving]

NARRATIVE: CASE EVENT DATE: 20140310
